FAERS Safety Report 16331665 (Version 1)
Quarter: 2019Q2

REPORT INFORMATION
  Report Type: Spontaneous
  Country: US (occurrence: US)
  Receive Date: 20190518
  Receipt Date: 20190518
  Transmission Date: 20190711
  Serious: Yes (Hospitalization, Disabling, Other)
  Sender: FDA-Public Use
  Company Number: None

PATIENT
  Age: 70 Year
  Sex: Male
  Weight: 108 kg

DRUGS (20)
  1. CIPRO [Suspect]
     Active Substance: CIPROFLOXACIN HYDROCHLORIDE
     Indication: URINARY TRACT INFECTION
     Dates: start: 20180701, end: 20181112
  2. VITAMIN C [Concomitant]
     Active Substance: ASCORBIC ACID
  3. SELENIUM [Concomitant]
     Active Substance: SELENIUM
  4. FIBER PILLS [Concomitant]
  5. COQ10 [Concomitant]
     Active Substance: UBIDECARENONE
  6. B1 [Concomitant]
  7. CIPRO [Suspect]
     Active Substance: CIPROFLOXACIN HYDROCHLORIDE
     Indication: INFECTION
     Dates: start: 20180701, end: 20181112
  8. FOLATE B2 [Concomitant]
  9. VITAMIN K [Concomitant]
     Active Substance: PHYTONADIONE
  10. PROBIOTICS [Concomitant]
     Active Substance: PROBIOTICS NOS
  11. VITAMIN B12 [Concomitant]
     Active Substance: CYANOCOBALAMIN
  12. PRUNE JUICE [Concomitant]
  13. TRAMADOL. [Concomitant]
     Active Substance: TRAMADOL
  14. POTASSIUM [Concomitant]
     Active Substance: POTASSIUM
  15. B6 [Concomitant]
     Active Substance: PYRIDOXINE HYDROCHLORIDE
  16. D-MANNOSE [Concomitant]
  17. LUTEIN [Concomitant]
     Active Substance: LUTEIN
  18. NAD [Concomitant]
  19. SALMON OIL [Concomitant]
     Active Substance: FISH OIL
  20. MAGNESIUM [Concomitant]
     Active Substance: MAGNESIUM

REACTIONS (11)
  - Gastrointestinal disorder [None]
  - Tooth loss [None]
  - Mastication disorder [None]
  - Pain in extremity [None]
  - Arthralgia [None]
  - Walking aid user [None]
  - Tendon disorder [None]
  - Muscular weakness [None]
  - Gingival pain [None]
  - Insomnia [None]
  - Fall [None]

NARRATIVE: CASE EVENT DATE: 20180912
